FAERS Safety Report 15458289 (Version 1)
Quarter: 2018Q3

REPORT INFORMATION
  Report Type: Spontaneous
  Country: US (occurrence: US)
  Receive Date: 20180928
  Receipt Date: 20180928
  Transmission Date: 20181010
  Serious: Yes (Hospitalization)
  Sender: FDA-Public Use
  Company Number: None

PATIENT
  Age: 74 Year
  Sex: Female
  Weight: 124.28 kg

DRUGS (14)
  1. ABILIFY [Concomitant]
     Active Substance: ARIPIPRAZOLE
  2. XANAX [Concomitant]
     Active Substance: ALPRAZOLAM
  3. KLOR?CON [Concomitant]
     Active Substance: POTASSIUM CHLORIDE
  4. DENTA 5000 PLUS [Suspect]
     Active Substance: SODIUM FLUORIDE
     Indication: GINGIVAL DISORDER
     Dosage: 5000 PPM FLUORIDE TOOTHPASTE 1 DAB ON TOOTH... BEDTIME, MOUTH?BRUSHING TEETH
     Route: 048
     Dates: start: 2018, end: 20180805
  5. PRILOSEC [Concomitant]
     Active Substance: OMEPRAZOLE MAGNESIUM
  6. LASIX [Concomitant]
     Active Substance: FUROSEMIDE
  7. FLAXSEED [Concomitant]
     Active Substance: FLAX SEED
  8. PRESSER VISIONS?AREDS 2 [Concomitant]
  9. ASPIRIN 81 MG [Concomitant]
     Active Substance: ASPIRIN
  10. IBERSTATEN [Concomitant]
  11. OXYCODONE [Concomitant]
     Active Substance: OXYCODONE
  12. VITAMIN D + CALCIUM [Concomitant]
  13. PRISTIQ EXTENDED?RELEASE [Concomitant]
     Active Substance: DESVENLAFAXINE SUCCINATE
  14. LYRICA [Concomitant]
     Active Substance: PREGABALIN

REACTIONS (7)
  - Asthma [None]
  - Pulmonary congestion [None]
  - Joint swelling [None]
  - Accidental exposure to product [None]
  - Burning sensation [None]
  - Cough [None]
  - Myocardial oedema [None]

NARRATIVE: CASE EVENT DATE: 20180805
